FAERS Safety Report 8458999-2 (Version None)
Quarter: 2012Q2

REPORT INFORMATION
  Report Type: 
  Country: None (occurrence: None)
  Receive Date: 20120622
  Receipt Date: 20120613
  Transmission Date: 20120825
  Serious: Yes (Life-Threatening, Hospitalization, Other)
  Sender: FDA-Public Use
  Company Number: GB-ROCHE-1071512

PATIENT
  Age: 28 Year
  Sex: Male
  Weight: 75.6 kg

DRUGS (3)
  1. TOCILIZUMAB [Suspect]
     Indication: TAKAYASU'S ARTERITIS
     Route: 042
     Dates: start: 20110811
  2. PREDNISOLONE [Concomitant]
  3. AZATHIOPRINE [Concomitant]

REACTIONS (15)
  - BLOOD PRESSURE DECREASED [None]
  - BACK PAIN [None]
  - BODY TEMPERATURE INCREASED [None]
  - OXYGEN SATURATION DECREASED [None]
  - ABDOMINAL TENDERNESS [None]
  - CONDITION AGGRAVATED [None]
  - ABDOMINAL SEPSIS [None]
  - HEART RATE INCREASED [None]
  - IMMUNOSUPPRESSION [None]
  - PANCREATITIS [None]
  - RESPIRATORY RATE INCREASED [None]
  - SPLENIC INFARCTION [None]
  - ABDOMINAL PAIN [None]
  - ABDOMINAL DISTENSION [None]
  - TAKAYASU'S ARTERITIS [None]
